FAERS Safety Report 9372644 (Version 1)
Quarter: 2013Q2

REPORT INFORMATION
  Report Type: Report from Study
  Country: US (occurrence: US)
  Receive Date: 20130627
  Receipt Date: 20130627
  Transmission Date: 20140414
  Serious: Yes (Death)
  Sender: FDA-Public Use
  Company Number: US-MYLANLABS-2013S1003987

PATIENT
  Age: 84 Year
  Sex: Female

DRUGS (7)
  1. CLOZAPINE TABLETS [Suspect]
     Indication: MOOD DISORDER DUE TO A GENERAL MEDICAL CONDITION
     Route: 048
     Dates: end: 201302
  2. ATIVAN [Concomitant]
  3. NORCO [Concomitant]
     Indication: PAIN
     Dosage: 10MG/325MG BY MOUTH AS NEEDED
     Route: 048
  4. DEPAKOTE SPRINKLE [Concomitant]
  5. CLONIDINE [Concomitant]
     Indication: BLOOD PRESSURE INCREASED
  6. KADIAN [Concomitant]
     Indication: PAIN
  7. KCL [Concomitant]

REACTIONS (1)
  - Death [Fatal]
